FAERS Safety Report 16094072 (Version 2)
Quarter: 2023Q4

REPORT INFORMATION
  Report Type: Spontaneous
  Country: CZ (occurrence: CZ)
  Receive Date: 20190320
  Receipt Date: 20231023
  Transmission Date: 20240110
  Serious: Yes (Hospitalization, Other)
  Sender: FDA-Public Use
  Company Number: CZ-ACCORD-072763

PATIENT
  Age: 24 Year
  Sex: Female

DRUGS (8)
  1. DOCETAXEL [Suspect]
     Active Substance: DOCETAXEL
     Indication: Non-small cell lung cancer stage IV
     Dosage: EVERY THREE WEEKS
     Dates: start: 20140821, end: 201411
  2. CISPLATIN [Suspect]
     Active Substance: CISPLATIN
     Indication: Non-small cell lung cancer stage IV
     Dates: start: 20140620
  3. PEMETREXED [Suspect]
     Active Substance: PEMETREXED
     Indication: Non-small cell lung cancer stage IV
     Dates: start: 20140620
  4. DENOSUMAB [Suspect]
     Active Substance: DENOSUMAB
     Indication: Non-small cell lung cancer stage IV
     Dates: start: 201406
  5. NINTEDANIB [Suspect]
     Active Substance: NINTEDANIB
     Indication: Non-small cell lung cancer stage IV
     Dosage: ON DAYS 2 TO 22 DAY
     Dates: start: 20140821, end: 20141107
  6. FOLIC ACID [Suspect]
     Active Substance: FOLIC ACID
     Indication: Non-small cell lung cancer stage IV
     Dosage: ALSO RECEIVED ON JUL-2014
     Dates: start: 2014
  7. DENOSUMAB [Suspect]
     Active Substance: DENOSUMAB
     Indication: Non-small cell lung cancer stage IV
     Dates: start: 201407
  8. PEMETREXED [Suspect]
     Active Substance: PEMETREXED
     Indication: Non-small cell lung cancer stage IV
     Dates: start: 20140720

REACTIONS (12)
  - Anaemia [Unknown]
  - Hepatotoxicity [Unknown]
  - Nausea [Unknown]
  - Vomiting [Unknown]
  - Diarrhoea [Recovered/Resolved]
  - Hypocalcaemia [Not Recovered/Not Resolved]
  - Intestinal haemorrhage [Unknown]
  - Candida infection [Recovered/Resolved]
  - Oral candidiasis [Unknown]
  - Hypokalaemia [Unknown]
  - Duodenal ulcer haemorrhage [Unknown]
  - Oral pain [Unknown]

NARRATIVE: CASE EVENT DATE: 20140101
